FAERS Safety Report 23264558 (Version 2)
Quarter: 2023Q4

REPORT INFORMATION
  Report Type: Spontaneous
  Country: TM (occurrence: None)
  Receive Date: 20231205
  Receipt Date: 20231215
  Transmission Date: 20240109
  Serious: Yes (Death, Hospitalization)
  Sender: FDA-Public Use
  Company Number: TM-ROCHE-3465127

PATIENT
  Sex: Male

DRUGS (1)
  1. EVRYSDI [Suspect]
     Active Substance: RISDIPLAM
     Indication: Spinal muscular atrophy
     Route: 065
     Dates: start: 20231027

REACTIONS (2)
  - Death [Fatal]
  - Pneumonia [Unknown]
